FAERS Safety Report 25889574 (Version 1)
Quarter: 2025Q4

REPORT INFORMATION
  Report Type: Spontaneous
  Country: US (occurrence: US)
  Receive Date: 20251007
  Receipt Date: 20251007
  Transmission Date: 20260119
  Serious: Yes (Hospitalization)
  Sender: ROCHE
  Company Number: US-ROCHE-10000401417

PATIENT
  Sex: Male

DRUGS (9)
  1. ERIVEDGE [Suspect]
     Active Substance: VISMODEGIB
     Indication: Basal cell carcinoma
     Route: 048
  2. ATORVASTATIN [Concomitant]
     Active Substance: ATORVASTATIN
  3. CARNITINE L POW [Concomitant]
  4. CARBIDOPA-LE TAB 10 [Concomitant]
     Dosage: 10-100 MG
  5. METOPROLOL S TB2 [Concomitant]
  6. PANTOPRAZOLE TBE [Concomitant]
  7. TAMSULOSIN H CAP [Concomitant]
  8. BUSPIRONE HC TAB [Concomitant]
  9. DONEPEZIL HC TAB [Concomitant]

REACTIONS (1)
  - Fall [Unknown]
